FAERS Safety Report 19074075 (Version 1)
Quarter: 2021Q1

REPORT INFORMATION
  Report Type: Spontaneous
  Country: FR (occurrence: FR)
  Receive Date: 20210330
  Receipt Date: 20210330
  Transmission Date: 20210420
  Serious: Yes (Hospitalization)
  Sender: FDA-Public Use
  Company Number: FR-PFIZER INC-2021283135

PATIENT
  Age: 77 Year
  Sex: Female

DRUGS (11)
  1. KARDEGIC [Suspect]
     Active Substance: ASPIRIN DL-LYSINE
     Indication: HYPERTENSION
     Dosage: 75 MG, 1X/DAY
     Route: 048
  2. COUMADINE [Suspect]
     Active Substance: WARFARIN SODIUM
     Indication: ATRIAL FIBRILLATION
     Dosage: 3.5 MG, 1X/DAY, 4 MG ON MONDAYS AND THURSDAYS
     Route: 048
     Dates: end: 20210302
  3. COMIRNATY [Suspect]
     Active Substance: TOZINAMERAN
     Indication: COVID-19 IMMUNISATION
     Dosage: SINGLE DOSE
     Route: 030
     Dates: start: 20210215, end: 20210215
  4. TRIMEBUTINE [Concomitant]
     Active Substance: TRIMEBUTINE
  5. ATORVASTATIN [Concomitant]
     Active Substance: ATORVASTATIN
  6. ESOMEPRAZOLE. [Concomitant]
     Active Substance: ESOMEPRAZOLE MAGNESIUM
  7. EFFEXOR [Suspect]
     Active Substance: VENLAFAXINE HYDROCHLORIDE
     Indication: DEPRESSION
     Dosage: 37.5 MG MORNING 75 MG EVENING
     Route: 048
  8. OFLOXACIN. [Suspect]
     Active Substance: OFLOXACIN
     Indication: CYSTITIS
     Dosage: 400 MG, 1X/DAY
     Route: 048
     Dates: start: 20210225, end: 20210302
  9. FUROSEMIDE. [Concomitant]
     Active Substance: FUROSEMIDE
  10. SPIRONOLACTONE. [Concomitant]
     Active Substance: SPIRONOLACTONE
  11. PURSENNIDE [SENNOSIDE A+B] [Concomitant]
     Active Substance: SENNOSIDES A AND B

REACTIONS (3)
  - Hepatic haematoma [Recovering/Resolving]
  - International normalised ratio increased [Recovered/Resolved]
  - Hepatitis [Recovering/Resolving]

NARRATIVE: CASE EVENT DATE: 20210218
